FAERS Safety Report 8856317 (Version 1)
Quarter: 2012Q4

REPORT INFORMATION
  Report Type: Spontaneous
  Country: DK (occurrence: None)
  Receive Date: 20121018
  Receipt Date: 20121018
  Transmission Date: 20130627
  Serious: Yes (Life-Threatening, Hospitalization)
  Sender: FDA-Public Use
  Company Number: 2012MA012578

PATIENT
  Age: 47 Year
  Sex: Male

DRUGS (10)
  1. GEMCITABINE HYDROCHLORIDE [Suspect]
     Indication: PANCREATIC CANCER
     Dosage: 2052 mg; 1 trimester(s); iv
     Route: 042
     Dates: start: 20120525
  2. INVESTIGATIONAL STUDY DRUG [Suspect]
     Indication: PANCREATIC CANCER
     Dosage: 1 MG, TRIMESTER(S); ID
     Dates: start: 20120525, end: 20120621
  3. MST CONTINUS [Concomitant]
  4. ORAMORPH [Concomitant]
  5. OMEPRAZOLE [Concomitant]
  6. METOCLOPRAMIDE [Concomitant]
  7. BISACODYL [Concomitant]
  8. AUGMENTIN [Concomitant]
  9. BUSCOPAN [Concomitant]
  10. DOCUSATE SODIUM [Concomitant]

REACTIONS (1)
  - Cerebellar infarction [None]
